FAERS Safety Report 4895804-5 (Version None)
Quarter: 2006Q1

REPORT INFORMATION
  Report Type: 
  Country: None (occurrence: None)
  Receive Date: 20060125
  Receipt Date: 20060124
  Transmission Date: 20060701
  Serious: Yes (Hospitalization, Other)
  Sender: FDA-Public Use
  Company Number: HQWYE457923JAN06

PATIENT
  Age: 64 Year
  Sex: Male

DRUGS (1)
  1. CORDARONE [Suspect]
     Route: 048

REACTIONS (1)
  - JAUNDICE [None]
